FAERS Safety Report 16071477 (Version 1)
Quarter: 2019Q2

REPORT INFORMATION
  Report Type: Spontaneous
  Country: US (occurrence: US)
  Receive Date: 20190314
  Receipt Date: 20190314
  Transmission Date: 20190711
  Serious: Yes (Hospitalization)
  Sender: FDA-Public Use
  Company Number: None

PATIENT
  Sex: Male

DRUGS (4)
  1. FOLIC ACID 1000 MCG [Concomitant]
  2. TIZANIDINE 4 MG [Concomitant]
     Active Substance: TIZANIDINE
  3. HUMIRA [Suspect]
     Active Substance: ADALIMUMAB
     Indication: ANKYLOSING SPONDYLITIS
     Dosage: ?          OTHER FREQUENCY:EVERY 2 WEEKS;?
     Route: 058
  4. SULFASALAZIN 500 DR [Concomitant]

REACTIONS (4)
  - Hip arthroplasty [None]
  - Therapy cessation [None]
  - Musculoskeletal stiffness [None]
  - Condition aggravated [None]
